FAERS Safety Report 16337200 (Version 1)
Quarter: 2019Q2

REPORT INFORMATION
  Report Type: Spontaneous
  Country: US (occurrence: US)
  Receive Date: 20190520
  Receipt Date: 20190520
  Transmission Date: 20190711
  Serious: Yes (Other)
  Sender: FDA-Public Use
  Company Number: None

PATIENT
  Age: 44 Year
  Sex: Female

DRUGS (4)
  1. HUMIRA [Suspect]
     Active Substance: ADALIMUMAB
     Indication: RHEUMATOID ARTHRITIS
     Dosage: ?          OTHER FREQUENCY:EVERY OTHER WEEK;?
     Route: 058
     Dates: start: 20190430
  2. FAMOTIDINE 20 MG [Concomitant]
     Active Substance: FAMOTIDINE
  3. METHOTREXATE 2.5 MG [Concomitant]
     Active Substance: METHOTREXATE
  4. ESTRADIOL 0.5 MG [Concomitant]

REACTIONS (4)
  - Eye pain [None]
  - Vomiting [None]
  - Headache [None]
  - Nausea [None]

NARRATIVE: CASE EVENT DATE: 20190517
